FAERS Safety Report 25747935 (Version 1)
Quarter: 2025Q3

REPORT INFORMATION
  Report Type: Spontaneous
  Country: EU (occurrence: EU)
  Receive Date: 20250901
  Receipt Date: 20250901
  Transmission Date: 20251020
  Serious: Yes (Hospitalization)
  Sender: UCB
  Company Number: None

PATIENT
  Age: 47 Year
  Sex: Male
  Weight: 60 kg

DRUGS (10)
  1. KEPPRA [Suspect]
     Active Substance: LEVETIRACETAM
     Indication: Wrong patient received product
     Route: 048
     Dates: start: 20250707, end: 20250707
  2. CLOBAZAM [Suspect]
     Active Substance: CLOBAZAM
     Indication: Wrong patient received product
     Route: 048
     Dates: start: 20250707, end: 20250707
  3. BACLOFEN [Suspect]
     Active Substance: BACLOFEN
     Indication: Wrong patient received product
     Route: 048
     Dates: start: 20250707, end: 20250707
  4. TROPATEPINE HYDROCHLORIDE [Concomitant]
     Active Substance: TROPATEPINE HYDROCHLORIDE
     Indication: Product used for unknown indication
     Dosage: 1-0-0 LONG COURS
     Route: 048
  5. LOXAPINE HYDROCHLORIDE [Concomitant]
     Active Substance: LOXAPINE HYDROCHLORIDE
     Indication: Product used for unknown indication
     Route: 048
  6. MESTINON [Concomitant]
     Active Substance: PYRIDOSTIGMINE BROMIDE
     Indication: Product used for unknown indication
     Route: 048
  7. RISPERDAL [Concomitant]
     Active Substance: RISPERIDONE
     Indication: Product used for unknown indication
     Dosage: 1-0-0 LONG COURS
     Route: 048
  8. CYAMEMAZINE [Concomitant]
     Active Substance: CYAMEMAZINE
     Indication: Product used for unknown indication
     Dosage: 1-2-1 LONG COURS
     Route: 048
  9. ESOMEPRAZOLE MAGNESIUM [Concomitant]
     Active Substance: ESOMEPRAZOLE MAGNESIUM
     Indication: Product used for unknown indication
     Dosage: 0-0-2 LONG COURS
     Route: 048
  10. LANSOPRAZOLE [Concomitant]
     Active Substance: LANSOPRAZOLE
     Indication: Product used for unknown indication
     Dosage: 0-0-1 LONG COURS
     Route: 048

REACTIONS (4)
  - Asthenia [Recovered/Resolved]
  - Somnolence [Recovered/Resolved]
  - Loss of consciousness [Recovered/Resolved]
  - Wrong patient received product [Unknown]

NARRATIVE: CASE EVENT DATE: 20250707
